FAERS Safety Report 6669416-7 (Version None)
Quarter: 2010Q2

REPORT INFORMATION
  Report Type: 
  Country: None (occurrence: None)
  Receive Date: 20100402
  Receipt Date: 20100322
  Transmission Date: 20101027
  Serious: Yes (Death, Hospitalization)
  Sender: FDA-Public Use
  Company Number: US-JNJFOC-20100304844

PATIENT
  Age: 72 Year
  Sex: Male
  Weight: 77.2476 kg

DRUGS (3)
  1. DECITABINE (DECITABINE) LYOPHILIZED POWDER [Suspect]
     Indication: MYELODYSPLASTIC SYNDROME
     Dosage: 20 MG/M2, 1 IN 1 MONTH, INTRAVENOUS
     Route: 042
     Dates: start: 20100222, end: 20100226
  2. CYTARABINE [Suspect]
     Indication: MYELODYSPLASTIC SYNDROME
     Dosage: 20 MG/M2, 1 IN 1 MONTH, SUBCUTANEOUS
     Route: 058
     Dates: start: 20100222, end: 20100226
  3. G-CSF (GRANULOCYTE COLONY STIMULATING FACTOR) INJECTION [Suspect]
     Indication: MYELODYSPLASTIC SYNDROME
     Dosage: 5 UG/KG, IN 1 MONTH, SUBCUTANEOUS
     Route: 058
     Dates: start: 20100222, end: 20100226

REACTIONS (15)
  - COMPUTERISED TOMOGRAM ABNORMAL [None]
  - DEHYDRATION [None]
  - DYSPHAGIA [None]
  - DYSPNOEA [None]
  - HAEMOGLOBIN DECREASED [None]
  - HYPOTENSION [None]
  - HYPOXIA [None]
  - MUCOSAL INFLAMMATION [None]
  - ORTHOPNOEA [None]
  - PLATELET COUNT DECREASED [None]
  - PNEUMONIA [None]
  - RESPIRATORY FAILURE [None]
  - SEPTIC SHOCK [None]
  - SYNCOPE [None]
  - TACHYCARDIA [None]
